FAERS Safety Report 7861149-4 (Version None)
Quarter: 2011Q4

REPORT INFORMATION
  Report Type: 
  Country: None (occurrence: None)
  Receive Date: 20111027
  Receipt Date: 20111018
  Transmission Date: 20120403
  Serious: Yes (Other)
  Sender: FDA-Public Use
  Company Number: US-BAYER-2011-028612

PATIENT
  Age: 17 Year
  Sex: Female
  Weight: 50.34 kg

DRUGS (2)
  1. XOPENEX [Concomitant]
  2. YAZ [Suspect]
     Indication: DYSMENORRHOEA
     Dosage: UNK
     Route: 048
     Dates: start: 20100101, end: 20100501

REACTIONS (10)
  - ABDOMINAL PAIN [None]
  - INJURY [None]
  - ANXIETY [None]
  - NAUSEA [None]
  - CHOLECYSTITIS CHRONIC [None]
  - CHOLELITHIASIS [None]
  - PAIN [None]
  - CHOLECYSTITIS [None]
  - GALLBLADDER POLYP [None]
  - ANHEDONIA [None]
